FAERS Safety Report 16478977 (Version 1)
Quarter: 2019Q2

REPORT INFORMATION
  Report Type: Spontaneous
  Country: PT (occurrence: PT)
  Receive Date: 20190626
  Receipt Date: 20190626
  Transmission Date: 20190711
  Serious: Yes (Hospitalization, Other)
  Sender: FDA-Public Use
  Company Number: PT-MYLANLABS-2019M1057974

PATIENT
  Age: 45 Year
  Sex: Male

DRUGS (1)
  1. LEVOFLOXACIN. [Suspect]
     Active Substance: LEVOFLOXACIN
     Indication: DIARRHOEA
     Dosage: UNK

REACTIONS (2)
  - Pulmonary sarcoidosis [Unknown]
  - Cutaneous sarcoidosis [Unknown]
